FAERS Safety Report 24900428 (Version 1)
Quarter: 2025Q1

REPORT INFORMATION
  Report Type: Spontaneous
  Country: US (occurrence: US)
  Receive Date: 20250129
  Receipt Date: 20250129
  Transmission Date: 20250409
  Serious: No
  Sender: PERRIGO
  Company Number: US-PERRIGO-24US002348

PATIENT
  Age: 34 Year
  Sex: Female
  Weight: 77.098 kg

DRUGS (1)
  1. IBUPROFEN AND DIPHENHYDRAMINE CITRATE [Suspect]
     Active Substance: DIPHENHYDRAMINE CITRATE\IBUPROFEN
     Indication: Headache
     Route: 048
     Dates: start: 20240301, end: 20240302

REACTIONS (5)
  - Condition aggravated [Recovered/Resolved]
  - Feeling drunk [Recovered/Resolved]
  - Drug ineffective [Unknown]
  - Incorrect dose administered [Recovered/Resolved]
  - Wrong technique in product usage process [Unknown]

NARRATIVE: CASE EVENT DATE: 20240301
